FAERS Safety Report 9322002 (Version 1)
Quarter: 2013Q2

REPORT INFORMATION
  Report Type: Spontaneous
  Country: NO (occurrence: NO)
  Receive Date: 20130531
  Receipt Date: 20130531
  Transmission Date: 20140414
  Serious: Yes (Disabling)
  Sender: FDA-Public Use
  Company Number: NO-SANOFI-AVENTIS-2013SA053606

PATIENT
  Age: 46 Year
  Sex: Female

DRUGS (1)
  1. STILNOCT [Suspect]
     Indication: INSOMNIA
     Route: 048
     Dates: start: 20130518, end: 20130523

REACTIONS (2)
  - Crying [Recovered/Resolved]
  - Nightmare [Recovered/Resolved]
